FAERS Safety Report 6912605-4 (Version None)
Quarter: 2010Q3

REPORT INFORMATION
  Report Type: 
  Country: None (occurrence: None)
  Receive Date: 20100806
  Receipt Date: 20080808
  Transmission Date: 20110219
  Serious: No
  Sender: FDA-Public Use
  Company Number: US-PFIZER INC-2008067780

PATIENT
  Sex: Female
  Weight: 43.2 kg

DRUGS (8)
  1. DETROL LA [Suspect]
     Indication: POLLAKIURIA
     Dates: start: 20080201
  2. AMLODIPINE [Concomitant]
  3. HYDRALAZINE HCL [Concomitant]
  4. HYDROXYUREA [Concomitant]
  5. ACETYLSALICYLIC ACID SRT [Concomitant]
  6. PRAVASTATIN [Concomitant]
  7. MULTI-VITAMINS [Concomitant]
  8. UBIDECARENONE [Concomitant]

REACTIONS (3)
  - DIARRHOEA [None]
  - DYSURIA [None]
  - PAIN [None]
